FAERS Safety Report 10527082 (Version 1)
Quarter: 2014Q4

REPORT INFORMATION
  Report Type: Spontaneous
  Country: US (occurrence: None)
  Receive Date: 20141016
  Receipt Date: 20141016
  Transmission Date: 20150528
  Serious: Yes (Life-Threatening, Hospitalization, Other)
  Sender: FDA-Public Use
  Company Number: QSC-2014-0719

PATIENT
  Age: 76 Year
  Sex: Male
  Weight: 89.8 kg

DRUGS (16)
  1. COQ10 /00517201/ (UBIDECARENONE) [Concomitant]
  2. LANTUS [Concomitant]
     Active Substance: INSULIN GLARGINE
  3. PHOSLO [Concomitant]
     Active Substance: CALCIUM ACETATE
  4. H.P. ACTHAR [Suspect]
     Active Substance: CORTICOTROPIN
     Indication: CHRONIC KIDNEY DISEASE
     Dosage: 80 UNITS
     Route: 058
     Dates: start: 20140226
  5. METOPROLOL (METOPROLOL) [Concomitant]
     Active Substance: METOPROLOL
  6. ALPHAGEN [Concomitant]
  7. GARLIC /01570501/ (ALLIUM SATIVUM) [Concomitant]
  8. ZOCOR [Concomitant]
     Active Substance: SIMVASTATIN
  9. BUMETANIDE (BUMETANIDE) [Concomitant]
     Active Substance: BUMETANIDE
  10. FISH OIL (FISH OIL) [Concomitant]
     Active Substance: FISH OIL
  11. HUMALOG [Concomitant]
     Active Substance: INSULIN LISPRO
  12. PROBIOTICS /07325001/ (BIFIDOBACTERIUM LONGUM, LACTOBACILLUS ACIDOPHILUS, LACTOBACILLUS RHAMNOSUS) [Concomitant]
  13. VITAMIN D3 [Concomitant]
     Active Substance: CHOLECALCIFEROL
  14. PROCRIT /00909301/ (ERYTHROPOIETIN) [Concomitant]
  15. FERROUS SULFATE [Concomitant]
     Active Substance: FERROUS SULFATE\FERROUS SULFATE, DRIED
  16. DORZOLAMIDE (DORZOLAMIDE) [Concomitant]

REACTIONS (8)
  - Dyspnoea [None]
  - Urinary retention [None]
  - Pyrexia [None]
  - Respiratory distress [None]
  - Acute myocardial infarction [None]
  - Pneumonia [None]
  - Renal failure [None]
  - Cough [None]

NARRATIVE: CASE EVENT DATE: 2014
